FAERS Safety Report 25733683 (Version 1)
Quarter: 2025Q3

REPORT INFORMATION
  Report Type: Spontaneous
  Country: IR (occurrence: IR)
  Receive Date: 20250828
  Receipt Date: 20250828
  Transmission Date: 20251021
  Serious: Yes (Hospitalization, Disabling)
  Sender: ACCORD
  Company Number: IR-Accord-501320

PATIENT
  Age: 61 Year
  Sex: Female

DRUGS (5)
  1. HYDROXYCHLOROQUINE [Suspect]
     Active Substance: HYDROXYCHLOROQUINE
     Indication: Immunosuppressant drug therapy
  2. MYCOPHENOLATE MOFETIL [Suspect]
     Active Substance: MYCOPHENOLATE MOFETIL
     Indication: Immunosuppressant drug therapy
  3. PREDNISOLONE [Suspect]
     Active Substance: PREDNISOLONE
     Indication: Immunosuppressant drug therapy
  4. WARFARIN [Concomitant]
     Active Substance: WARFARIN
  5. CAPTOPRIL [Concomitant]
     Active Substance: CAPTOPRIL

REACTIONS (3)
  - Myelitis transverse [Recovered/Resolved]
  - Varicella zoster virus infection [Recovered/Resolved]
  - Bicytopenia [Unknown]
